FAERS Safety Report 26108818 (Version 1)
Quarter: 2025Q4

REPORT INFORMATION
  Report Type: Spontaneous
  Country: US (occurrence: None)
  Receive Date: 20251128
  Receipt Date: 20251128
  Transmission Date: 20260117
  Serious: No
  Sender: FDA-CTU
  Company Number: None

PATIENT
  Age: 67 Year
  Sex: Male
  Weight: 85.5 kg

DRUGS (2)
  1. CAREALL ZINC OXIDE [Suspect]
     Active Substance: ZINC OXIDE
     Indication: Anal pruritus
     Dosage: AT BEDTIME RECTAL ?
     Route: 054
     Dates: start: 20251114, end: 20251127
  2. MINERALS\VITAMINS [Concomitant]
     Active Substance: MINERALS\VITAMINS

REACTIONS (1)
  - Allergic reaction to excipient [None]

NARRATIVE: CASE EVENT DATE: 20251127
